FAERS Safety Report 4436385-X (Version None)
Quarter: 2004Q3

REPORT INFORMATION
  Report Type: 
  Country: None (occurrence: None)
  Receive Date: 20040830
  Receipt Date: 20040426
  Transmission Date: 20050211
  Serious: Yes (Hospitalization)
  Sender: FDA-Public Use
  Company Number: US-BRISTOL-MYERS SQUIBB COMPANY-12571295

PATIENT
  Age: 38 Year
  Sex: Female
  Weight: 59 kg

DRUGS (14)
  1. ARIPIPRAZOLE [Suspect]
     Indication: SCHIZOPHRENIA
     Route: 048
     Dates: start: 20030901, end: 20030902
  2. ADVAIR DISKUS 100/50 [Concomitant]
     Dosage: DOSE = 100/50
     Dates: start: 20030828, end: 20030908
  3. KLONOPIN [Concomitant]
     Dates: start: 20030828, end: 20030908
  4. DEPAKOTE [Concomitant]
     Dates: start: 20030828, end: 20030828
  5. NEXIUM [Concomitant]
     Dates: start: 20030828, end: 20030908
  6. NEURONTIN [Concomitant]
     Dates: start: 20030829, end: 20030908
  7. LITHIUM CARBONATE [Concomitant]
     Dates: start: 20030828, end: 20030908
  8. METHADONE HCL [Concomitant]
     Dates: start: 20030830, end: 20030908
  9. ZYPREXA [Concomitant]
     Dates: start: 20030828, end: 20030907
  10. WELLBUTRIN SR [Concomitant]
     Dates: start: 20030830, end: 20030907
  11. PREDNISONE [Concomitant]
     Dates: start: 20030903, end: 20030907
  12. ULTRAM [Concomitant]
     Dates: start: 20030828, end: 20030908
  13. BACTRIM DS [Concomitant]
     Dates: start: 20030829, end: 20030907
  14. AMBIEN [Concomitant]
     Dates: start: 20030828, end: 20030907

REACTIONS (1)
  - NEUROLEPTIC MALIGNANT SYNDROME [None]
